FAERS Safety Report 7153572-0 (Version None)
Quarter: 2010Q4

REPORT INFORMATION
  Report Type: 
  Country: None (occurrence: None)
  Receive Date: 20101130
  Receipt Date: 20101118
  Transmission Date: 20110411
  Serious: Yes (Other)
  Sender: FDA-Public Use
  Company Number: 2010SP060924

PATIENT
  Age: 36 Year
  Sex: Male

DRUGS (1)
  1. NARINE REPETABS (LORATADINE/PSEUDOEPHEDRINE SULFATE) (LORATADINE W/PSE [Suspect]
     Indication: NASOPHARYNGITIS
     Dosage: 2 DF; BID; PO
     Route: 048
     Dates: start: 20101101, end: 20101114

REACTIONS (3)
  - DRUG HYPERSENSITIVITY [None]
  - POLYDIPSIA [None]
  - URINE OUTPUT DECREASED [None]
